FAERS Safety Report 4805601-4 (Version None)
Quarter: 2005Q4

REPORT INFORMATION
  Report Type: 
  Country: None (occurrence: None)
  Receive Date: 20051018
  Receipt Date: 20051007
  Transmission Date: 20060501
  Serious: Yes (Hospitalization)
  Sender: FDA-Public Use
  Company Number: 2005139582

PATIENT
  Age: 70 Year
  Sex: Female
  Weight: 108.8633 kg

DRUGS (5)
  1. NORVASC [Suspect]
     Indication: HYPERTENSION
     Dosage: 5 MG (DAILY INTERVAL:  EVERY DAY)
     Dates: start: 20020101
  2. SPIC+SPAN (ALL OTHER NON-THERAPEUTIC PRODUCTS) [Suspect]
     Indication: ILL-DEFINED DISORDER
     Dosage: NOT APPLICABLE
  3. PLAVIX [Concomitant]
  4. LASIX [Concomitant]
  5. HUMALOG [Concomitant]

REACTIONS (4)
  - ASTHMA [None]
  - DYSPNOEA [None]
  - FAECALOMA [None]
  - GASTROINTESTINAL DISORDER [None]
